FAERS Safety Report 8776863 (Version 3)
Quarter: 2015Q3

REPORT INFORMATION
  Report Type: Spontaneous
  Country: US (occurrence: US)
  Receive Date: 20120911
  Receipt Date: 20150901
  Transmission Date: 20151125
  Serious: No
  Sender: FDA-Public Use
  Company Number: US-ASTRAZENECA-2012SE64876

PATIENT
  Age: 631 Month
  Sex: Female
  Weight: 70.8 kg

DRUGS (3)
  1. CRESTOR [Suspect]
     Active Substance: ROSUVASTATIN CALCIUM
     Indication: BLOOD CHOLESTEROL
     Route: 048
  2. CRESTOR [Suspect]
     Active Substance: ROSUVASTATIN CALCIUM
     Indication: BLOOD CHOLESTEROL
     Route: 048
  3. NEXIUM [Suspect]
     Active Substance: ESOMEPRAZOLE MAGNESIUM
     Route: 048

REACTIONS (4)
  - Drug dose omission [Unknown]
  - Abdominal pain upper [Unknown]
  - Intentional product misuse [Unknown]
  - Drug dispensing error [Unknown]

NARRATIVE: CASE EVENT DATE: 201508
